FAERS Safety Report 9725637 (Version 2)
Quarter: 2013Q4

REPORT INFORMATION
  Report Type: Report from Study
  Country: DE (occurrence: DE)
  Receive Date: 20131203
  Receipt Date: 20131210
  Transmission Date: 20140711
  Serious: Yes (Other)
  Sender: FDA-Public Use
  Company Number: DE-INCYTE CORPORATION-2013IN002819

PATIENT
  Sex: Female
  Weight: 64.3 kg

DRUGS (4)
  1. INCB018424 [Suspect]
     Indication: MYELOFIBROSIS
     Dosage: 20 MG, (2 DF PER DAY)
     Route: 048
     Dates: start: 20130624
  2. BLOOD TRANSFUSION, AUXILIARY PRODUCTS (NO INGREDIENT/SUBSTANCES) [Concomitant]
  3. RAMIPRIL [Concomitant]
     Dosage: UNK
     Dates: start: 20020315
  4. METFORMIN [Concomitant]
     Dosage: UNK
     Dates: start: 20130115

REACTIONS (1)
  - Deep vein thrombosis [Not Recovered/Not Resolved]
